FAERS Safety Report 5406796-4 (Version None)
Quarter: 2007Q3

REPORT INFORMATION
  Report Type: 
  Country: None (occurrence: None)
  Receive Date: 20070807
  Receipt Date: 20070803
  Transmission Date: 20080115
  Serious: Yes (Death, Other)
  Sender: FDA-Public Use
  Company Number: PHNR2007AU01435

PATIENT
  Age: 76 Year
  Sex: Female

DRUGS (4)
  1. NAPROSYN - SLOW RELEASE ^ROCHE^ [Suspect]
     Indication: MYALGIA
     Dosage: 750 MG DAILY
     Route: 048
     Dates: start: 19940901
  2. LASIX [Suspect]
     Indication: CARDIAC FAILURE CONGESTIVE
     Dosage: 40 MG DAILY
     Route: 048
  3. PREDNISOLONE [Suspect]
     Indication: MYALGIA
     Dosage: 5 MG DAILY
     Route: 048
  4. SLOW-K [Suspect]
     Indication: CARDIAC FAILURE CONGESTIVE
     Dosage: 1.2 G DAILY
     Route: 048

REACTIONS (5)
  - MELAENA [None]
  - NAUSEA [None]
  - SUDDEN DEATH [None]
  - SYNCOPE [None]
  - VOMITING [None]
